FAERS Safety Report 9927228 (Version 1)
Quarter: 2014Q1

REPORT INFORMATION
  Report Type: Spontaneous
  Country: US (occurrence: US)
  Receive Date: 20140226
  Receipt Date: 20140226
  Transmission Date: 20141002
  Serious: No
  Sender: FDA-Public Use
  Company Number: US-AMGEN-USASP2014006389

PATIENT
  Age: 36 Year
  Sex: Male
  Weight: 101 kg

DRUGS (4)
  1. ENBREL [Suspect]
     Indication: PRODUCT USED FOR UNKNOWN INDICATION
     Dosage: 50 MG, QWK
     Route: 058
  2. PREDNISONE [Concomitant]
     Dosage: 10 MG, UNK
  3. CLOBETASOL [Concomitant]
     Dosage: 0.05 %, UNK
  4. IBUPROFEN [Concomitant]
     Dosage: 200 MG, UNK

REACTIONS (1)
  - Injection site induration [Unknown]
